FAERS Safety Report 7836920-5 (Version None)
Quarter: 2011Q4

REPORT INFORMATION
  Report Type: 
  Country: None (occurrence: None)
  Receive Date: 20111024
  Receipt Date: 20101223
  Transmission Date: 20120403
  Serious: No
  Sender: FDA-Public Use
  Company Number: US-ABBOTT-10P-163-0694132-00

PATIENT
  Sex: Female
  Weight: 50.848 kg

DRUGS (3)
  1. LUPRON DEPOT [Suspect]
     Indication: UTERINE LEIOMYOMA
     Dates: start: 20101118, end: 20101227
  2. IRON [Concomitant]
     Indication: MINERAL SUPPLEMENTATION
  3. MEGESTROL ACETATE [Concomitant]
     Indication: VAGINAL HAEMORRHAGE
     Dates: start: 20101001

REACTIONS (6)
  - ABASIA [None]
  - HOT FLUSH [None]
  - UTERINE PAIN [None]
  - PALPITATIONS [None]
  - POLYMENORRHOEA [None]
  - BONE PAIN [None]
